FAERS Safety Report 25369627 (Version 1)
Quarter: 2025Q2

REPORT INFORMATION
  Report Type: Spontaneous
  Country: US (occurrence: None)
  Receive Date: 20250528
  Receipt Date: 20250528
  Transmission Date: 20250717
  Serious: Yes (Life-Threatening, Disabling)
  Sender: FDA-CTU
  Company Number: None

PATIENT
  Age: 30 Year
  Sex: Female
  Weight: 67.5 kg

DRUGS (1)
  1. PROZAC [Suspect]
     Active Substance: FLUOXETINE HYDROCHLORIDE

REACTIONS (17)
  - Withdrawal syndrome [None]
  - Suicidal ideation [None]
  - Photophobia [None]
  - Hyperacusis [None]
  - Muscle twitching [None]
  - Myoclonus [None]
  - Nightmare [None]
  - Anxiety [None]
  - Palpitations [None]
  - Chest pain [None]
  - Pericarditis [None]
  - COVID-19 [None]
  - Acne [None]
  - Alopecia [None]
  - Polymenorrhoea [None]
  - Loss of personal independence in daily activities [None]
  - Impaired quality of life [None]

NARRATIVE: CASE EVENT DATE: 20230501
